FAERS Safety Report 8965766 (Version 1)
Quarter: 2012Q4

REPORT INFORMATION
  Report Type: 
  Country: IT (occurrence: IT)
  Receive Date: 20121217
  Receipt Date: 20121217
  Transmission Date: 20130627
  Serious: Yes (Hospitalization)
  Sender: FDA-Public Use
  Company Number: IT-PFIZER INC-2012314745

PATIENT
  Age: 65 Year
  Sex: Male

DRUGS (4)
  1. CARBOPLATIN [Suspect]
     Indication: ADENOCARCINOMA
     Dosage: 400 mg, total
     Route: 042
     Dates: start: 20121026, end: 20121026
  2. ALIMTA [Suspect]
     Indication: ADENOCARCINOMA
     Dosage: 1000 mg, total
     Route: 042
     Dates: start: 20121026, end: 20121026
  3. DOBETIN [Concomitant]
  4. FOLIC ACID [Concomitant]

REACTIONS (3)
  - Renal failure [Unknown]
  - Diarrhoea [Unknown]
  - Pancytopenia [Unknown]
